FAERS Safety Report 21953446 (Version 5)
Quarter: 2023Q1

REPORT INFORMATION
  Report Type: Report from Study
  Country: US (occurrence: US)
  Receive Date: 20230204
  Receipt Date: 20230310
  Transmission Date: 20230418
  Serious: No
  Sender: FDA-Public Use
  Company Number: US-002147023-NVSC2023US022248

PATIENT
  Age: 55 Year
  Sex: Male

DRUGS (2)
  1. KESIMPTA [Suspect]
     Active Substance: OFATUMUMAB
     Indication: Multiple sclerosis
     Dosage: 20 MG, QW
     Route: 058
     Dates: start: 20230128
  2. KESIMPTA [Suspect]
     Active Substance: OFATUMUMAB
     Dosage: UNK UNK, OTHER (STANDARD KESIMPTA DOSING)
     Route: 065
     Dates: start: 20230130

REACTIONS (2)
  - Myalgia [Unknown]
  - Injection site rash [Unknown]

NARRATIVE: CASE EVENT DATE: 20230301
